FAERS Safety Report 5219210-9 (Version None)
Quarter: 2007Q1

REPORT INFORMATION
  Report Type: 
  Country: None (occurrence: None)
  Receive Date: 20070125
  Receipt Date: 20070115
  Transmission Date: 20070707
  Serious: Yes (Other)
  Sender: FDA-Public Use
  Company Number: JP-MERCK-0701USA03464

PATIENT

DRUGS (2)
  1. COZAAR [Suspect]
     Indication: HYPERTENSION
     Route: 048
     Dates: start: 20061101
  2. [THERAPY UNSPECIFIED] [Concomitant]
     Route: 065
     Dates: end: 20061101

REACTIONS (3)
  - BLOOD POTASSIUM DECREASED [None]
  - CARDIAC FAILURE [None]
  - OEDEMA PERIPHERAL [None]
